FAERS Safety Report 6791374-5 (Version None)
Quarter: 2010Q2

REPORT INFORMATION
  Report Type: 
  Country: None (occurrence: None)
  Receive Date: 20100621
  Receipt Date: 20100614
  Transmission Date: 20101027
  Serious: Yes (Other)
  Sender: FDA-Public Use
  Company Number: 2010SP033472

PATIENT
  Age: 22 Year
  Sex: Male

DRUGS (1)
  1. MIRTAZAPINE [Suspect]
     Indication: MAJOR DEPRESSION

REACTIONS (3)
  - SUDDEN HEARING LOSS [None]
  - TINNITUS [None]
  - VERTIGO [None]
